FAERS Safety Report 5564749-X (Version None)
Quarter: 2007Q4

REPORT INFORMATION
  Report Type: 
  Country: None (occurrence: None)
  Receive Date: 20071213
  Receipt Date: 20071130
  Transmission Date: 20080405
  Serious: Yes (Hospitalization, Other)
  Sender: FDA-Public Use
  Company Number: 07-002350

PATIENT
  Age: 48 Year
  Sex: Female

DRUGS (9)
  1. LOESTRIN 24 FE [Suspect]
     Indication: CONTRACEPTION
     Dosage: QD, ORAL
     Route: 048
     Dates: start: 20070101, end: 20070419
  2. REVLIMID [Suspect]
     Indication: MULTIPLE MYELOMA
     Dosage: 25 MG, QD, ORAL
     Route: 048
     Dates: start: 20070124, end: 20070419
  3. ALLEGRA-D (FEXOFENADINE HYDROCHLORIDE, PSEUDOEPHEDRINE HYDROCHLORIDE) [Concomitant]
  4. PREVACID [Concomitant]
  5. CELEXA [Concomitant]
  6. HALDOL [Concomitant]
  7. XANAX [Concomitant]
  8. BUMEX [Concomitant]
  9. COGENTIN [Concomitant]

REACTIONS (5)
  - ACTIVATED PARTIAL THROMBOPLASTIN TIME PROLONGED [None]
  - HAEMANGIOMA OF LIVER [None]
  - HEADACHE [None]
  - PROTHROMBIN TIME SHORTENED [None]
  - PULMONARY EMBOLISM [None]
